FAERS Safety Report 6190741-0 (Version None)
Quarter: 2009Q2

REPORT INFORMATION
  Report Type: 
  Country: None (occurrence: None)
  Receive Date: 20090514
  Receipt Date: 20090507
  Transmission Date: 20091009
  Serious: Yes (Hospitalization, Other)
  Sender: FDA-Public Use
  Company Number: GB-ELI_LILLY_AND_COMPANY-GB200905001157

PATIENT
  Sex: Male

DRUGS (4)
  1. HUMALOG [Suspect]
  2. LANTUS [Concomitant]
     Indication: DIABETES MELLITUS
     Route: 058
     Dates: start: 20060101
  3. CANDESARTAN [Concomitant]
  4. WARFARIN SODIUM [Concomitant]

REACTIONS (4)
  - ATRIAL FIBRILLATION [None]
  - CONDITION AGGRAVATED [None]
  - HYPOGLYCAEMIA [None]
  - HYPOGLYCAEMIC UNCONSCIOUSNESS [None]
